FAERS Safety Report 12123595 (Version 1)
Quarter: 2016Q1

REPORT INFORMATION
  Report Type: Spontaneous
  Country: US (occurrence: None)
  Receive Date: 20160226
  Receipt Date: 20160226
  Transmission Date: 20160526
  Serious: Yes (Disabling)
  Sender: FDA-Public Use
  Company Number: None

PATIENT
  Age: 45 Year
  Sex: Female
  Weight: 49.44 kg

DRUGS (4)
  1. LEVOFLOXACIN. [Suspect]
     Active Substance: LEVOFLOXACIN
     Indication: COLITIS
     Dosage: 15 ONCE DAILY TAKEN BY MOUTH
     Route: 048
     Dates: start: 20160206, end: 20160218
  2. LEVOFLOXACIN. [Suspect]
     Active Substance: LEVOFLOXACIN
     Indication: INFECTION
     Dosage: 15 ONCE DAILY TAKEN BY MOUTH
     Route: 048
     Dates: start: 20160206, end: 20160218
  3. MULTIVITAMIN [Concomitant]
     Active Substance: VITAMINS
  4. VITAMIN D [Concomitant]
     Active Substance: CHOLECALCIFEROL

REACTIONS (2)
  - Tendonitis [None]
  - Pain in extremity [None]

NARRATIVE: CASE EVENT DATE: 20160219
